FAERS Safety Report 18203580 (Version 1)
Quarter: 2020Q3

REPORT INFORMATION
  Report Type: Other
  Country: CA (occurrence: CA)
  Receive Date: 20200827
  Receipt Date: 20200827
  Transmission Date: 20201103
  Serious: Yes (Hospitalization, Other)
  Sender: FDA-Public Use
  Company Number: CA-COVIS PHARMA B.V.-2020COV00404

PATIENT
  Sex: Male

DRUGS (11)
  1. CICLESONIDE [Suspect]
     Active Substance: CICLESONIDE
     Route: 055
  2. MONTELUKAST SODIUM. [Concomitant]
     Active Substance: MONTELUKAST SODIUM
  3. PANTOPRAZOLE SODIUM SESQUIHYDRATE [Concomitant]
     Active Substance: PANTOPRAZOLE SODIUM
  4. BUDESONIDE/FORMOTEROL FUMARATE [Suspect]
     Active Substance: BUDESONIDE\FORMOTEROL FUMARATE
     Route: 055
  5. THEOPHYLLINE [Suspect]
     Active Substance: THEOPHYLLINE ANHYDROUS
  6. NUCALA [Suspect]
     Active Substance: MEPOLIZUMAB
  7. ALDARA [Concomitant]
     Active Substance: IMIQUIMOD
  8. CETIRIZINE HYDROCHLORIDE. [Suspect]
     Active Substance: CETIRIZINE HYDROCHLORIDE
  9. SPIRIVA [Suspect]
     Active Substance: TIOTROPIUM BROMIDE MONOHYDRATE
  10. PREDNISONE. [Suspect]
     Active Substance: PREDNISONE
  11. SALBUTAMOL SULFATE [Suspect]
     Active Substance: ALBUTEROL SULFATE

REACTIONS (8)
  - Upper respiratory tract infection [Unknown]
  - Pulmonary function test decreased [Unknown]
  - Vital capacity decreased [Unknown]
  - Respiratory failure [Unknown]
  - Asthma [Unknown]
  - Hypoxia [Unknown]
  - Obstructive airways disorder [Unknown]
  - Forced expiratory volume decreased [Unknown]
